FAERS Safety Report 15539565 (Version 3)
Quarter: 2020Q4

REPORT INFORMATION
  Report Type: Other
  Country: US (occurrence: US)
  Receive Date: 20181023
  Receipt Date: 20201121
  Transmission Date: 20210113
  Serious: Yes (Hospitalization)
  Sender: FDA-Public Use
  Company Number: US-ROCHE-2201982

PATIENT
  Age: 60 Year
  Sex: Female
  Weight: 57.2 kg

DRUGS (3)
  1. EXCEDRIN (UNITED STATES) [Concomitant]
     Indication: HEADACHE
  2. OCREVUS [Suspect]
     Active Substance: OCRELIZUMAB
     Indication: RELAPSING-REMITTING MULTIPLE SCLEROSIS
     Route: 042
     Dates: start: 2017
  3. OCREVUS [Suspect]
     Active Substance: OCRELIZUMAB
     Indication: RELAPSING MULTIPLE SCLEROSIS
     Route: 042
     Dates: start: 201710

REACTIONS (3)
  - Pyrexia [Recovered/Resolved]
  - Urinary tract infection [Unknown]
  - Migraine [Not Recovered/Not Resolved]

NARRATIVE: CASE EVENT DATE: 201804
